FAERS Safety Report 18276041 (Version 1)
Quarter: 2020Q3

REPORT INFORMATION
  Report Type: Spontaneous
  Country: CA (occurrence: CA)
  Receive Date: 20200916
  Receipt Date: 20200916
  Transmission Date: 20201103
  Serious: Yes (Other)
  Sender: FDA-Public Use
  Company Number: CA-ROCHE-2676650

PATIENT
  Sex: Female
  Weight: 72.19 kg

DRUGS (1)
  1. OCREVUS [Suspect]
     Active Substance: OCRELIZUMAB
     Indication: MULTIPLE SCLEROSIS
     Route: 042
     Dates: start: 20200224

REACTIONS (2)
  - Agitation [Unknown]
  - Hypertension [Unknown]

NARRATIVE: CASE EVENT DATE: 20200910
